FAERS Safety Report 9130285 (Version 1)
Quarter: 2013Q1

REPORT INFORMATION
  Report Type: Spontaneous
  Country: CH (occurrence: CH)
  Receive Date: 20130228
  Receipt Date: 20130228
  Transmission Date: 20140127
  Serious: Yes (Other)
  Sender: FDA-Public Use
  Company Number: PHHY2012CH127918

PATIENT
  Age: 80 Year
  Sex: Male
  Weight: 88 kg

DRUGS (5)
  1. TIATRAL [Suspect]
     Indication: PLATELET AGGREGATION INHIBITION
     Dosage: 100 MG, QD
     Route: 048
     Dates: start: 20080514, end: 20120423
  2. PLAVIX [Suspect]
     Indication: PLATELET AGGREGATION INHIBITION
     Dosage: 75 MG, QD
     Route: 048
     Dates: start: 20080401, end: 20110605
  3. ASASANTIN [Suspect]
     Indication: PLATELET AGGREGATION INHIBITION
     Dosage: 1 DF, QD
     Route: 048
     Dates: start: 20120416, end: 20120717
  4. CLOPIDOGREL SPIRIG [Concomitant]
     Dosage: 75 MG, QD
     Route: 048
     Dates: start: 20120613, end: 20120717
  5. ASPIRIN CARDIO [Concomitant]
     Dosage: 100 MG, QD
     Route: 048
     Dates: start: 20051206, end: 20080716

REACTIONS (3)
  - Myalgia [Recovered/Resolved]
  - Arthralgia [Recovered/Resolved]
  - Osteoarthritis [Recovering/Resolving]
